FAERS Safety Report 20834196 (Version 2)
Quarter: 2022Q2

REPORT INFORMATION
  Report Type: Spontaneous
  Country: CA (occurrence: CA)
  Receive Date: 20220516
  Receipt Date: 20220524
  Transmission Date: 20220721
  Serious: Yes (Other)
  Sender: FDA-Public Use
  Company Number: CA-PFIZER INC-202200677586

PATIENT
  Age: 67 Year
  Sex: Female
  Weight: 53.6 kg

DRUGS (3)
  1. SOLU-MEDROL [Suspect]
     Active Substance: METHYLPREDNISOLONE SODIUM SUCCINATE
     Indication: Colitis ulcerative
     Dosage: 1 DF, 1X/DAY
     Route: 065
     Dates: start: 20220427
  2. INFLECTRA [Concomitant]
     Active Substance: INFLIXIMAB-DYYB
     Indication: Colitis ulcerative
     Dosage: 10 MG/KG
     Route: 042
     Dates: start: 20220504
  3. INFLECTRA [Concomitant]
     Active Substance: INFLIXIMAB-DYYB
     Dosage: 10 MG/KG
     Route: 042
     Dates: start: 20220513

REACTIONS (4)
  - Colitis ulcerative [Unknown]
  - Therapy non-responder [Unknown]
  - Fatigue [Not Recovered/Not Resolved]
  - Headache [Not Recovered/Not Resolved]

NARRATIVE: CASE EVENT DATE: 20220501
